FAERS Safety Report 17548342 (Version 2)
Quarter: 2023Q2

REPORT INFORMATION
  Report Type: Report from Study
  Country: AU (occurrence: AU)
  Receive Date: 20200317
  Receipt Date: 20230403
  Transmission Date: 20230721
  Serious: Yes (Other)
  Sender: FDA-Public Use
  Company Number: AU-BEH-2020114017

PATIENT
  Age: 60 Year
  Sex: Male
  Weight: 110 kg

DRUGS (8)
  1. BERINERT [Suspect]
     Active Substance: HUMAN C1-ESTERASE INHIBITOR
     Indication: Hereditary angioedema with C1 esterase inhibitor deficiency
     Dosage: 1500 INTERNATIONAL UNIT, BIW
     Route: 042
     Dates: start: 20200101, end: 20200226
  2. BERINERT [Suspect]
     Active Substance: HUMAN C1-ESTERASE INHIBITOR
     Indication: Hereditary angioedema with C1 esterase inhibitor deficiency
     Dosage: 1500 INTERNATIONAL UNIT, BIW
     Route: 042
     Dates: start: 20200101, end: 20200226
  3. BERINERT [Suspect]
     Active Substance: HUMAN C1-ESTERASE INHIBITOR
     Indication: Prophylaxis
     Dosage: 30 IU/KG, 3000 INTERNATIONAL UNIT, BIW
     Route: 058
     Dates: start: 20200310, end: 20200310
  4. BERINERT [Suspect]
     Active Substance: HUMAN C1-ESTERASE INHIBITOR
     Indication: Prophylaxis
     Dosage: 30 IU/KG, 3000 INTERNATIONAL UNIT, BIW
     Route: 058
     Dates: start: 20200310, end: 20200310
  5. FIRAZYR [Concomitant]
     Active Substance: ICATIBANT ACETATE
     Dosage: 500 MILLIGRAM
     Route: 065
  6. CYKLOKAPRON [Concomitant]
     Active Substance: TRANEXAMIC ACID
  7. XIGDUO XR [Concomitant]
     Active Substance: DAPAGLIFLOZIN PROPANEDIOL\METFORMIN HYDROCHLORIDE
     Indication: Diabetes mellitus
  8. XIGDUO XR [Concomitant]
     Active Substance: DAPAGLIFLOZIN PROPANEDIOL\METFORMIN HYDROCHLORIDE
     Indication: Diabetes mellitus

REACTIONS (108)
  - Hereditary angioedema [Unknown]
  - Headache [Unknown]
  - Rash [Unknown]
  - Hereditary angioedema [Unknown]
  - Rash [Unknown]
  - Dysentery [Unknown]
  - Headache [Unknown]
  - Hereditary angioedema [Unknown]
  - Rash [Unknown]
  - Dysentery [Unknown]
  - Hereditary angioedema [Unknown]
  - Rash [Unknown]
  - Headache [Unknown]
  - Hereditary angioedema [Unknown]
  - Rash [Unknown]
  - Hereditary angioedema [Unknown]
  - Dysentery [Unknown]
  - Rash [Unknown]
  - Hereditary angioedema [Unknown]
  - Dysentery [Unknown]
  - Rash [Unknown]
  - Headache [Unknown]
  - Hereditary angioedema [Unknown]
  - Headache [Unknown]
  - Dysentery [Unknown]
  - Hereditary angioedema [Unknown]
  - Headache [Unknown]
  - Hereditary angioedema [Unknown]
  - Rash [Unknown]
  - Headache [Unknown]
  - Hereditary angioedema [Unknown]
  - Rash [Unknown]
  - Headache [Unknown]
  - Hereditary angioedema [Unknown]
  - Dysentery [Unknown]
  - Hereditary angioedema [Unknown]
  - Rash [Unknown]
  - Headache [Unknown]
  - Hereditary angioedema [Unknown]
  - Headache [Unknown]
  - Illness [Unknown]
  - Hereditary angioedema [Unknown]
  - Hereditary angioedema [Unknown]
  - Headache [Unknown]
  - Rash [Unknown]
  - Dysentery [Unknown]
  - Hereditary angioedema [Unknown]
  - Rash [Unknown]
  - Dysentery [Unknown]
  - Hereditary angioedema [Unknown]
  - Hereditary angioedema [Unknown]
  - Rash [Unknown]
  - Hereditary angioedema [Unknown]
  - Dysentery [Unknown]
  - Rash [Unknown]
  - Hereditary angioedema [Unknown]
  - Hereditary angioedema [Unknown]
  - Hereditary angioedema [Unknown]
  - Hereditary angioedema [Unknown]
  - Dysentery [Unknown]
  - Hereditary angioedema [Unknown]
  - Dysentery [Unknown]
  - Hereditary angioedema [Unknown]
  - Dysentery [Unknown]
  - Headache [Unknown]
  - Hereditary angioedema [Unknown]
  - Headache [Unknown]
  - Rash [Unknown]
  - Hereditary angioedema [Unknown]
  - Rash [Unknown]
  - Headache [Unknown]
  - Hereditary angioedema [Unknown]
  - Illness [Unknown]
  - Hereditary angioedema [Unknown]
  - Illness [Unknown]
  - Hereditary angioedema [Unknown]
  - Illness [Unknown]
  - Hereditary angioedema [Unknown]
  - Hereditary angioedema [Unknown]
  - Illness [Unknown]
  - Rash [Unknown]
  - Hereditary angioedema [Unknown]
  - Rash [Unknown]
  - Hereditary angioedema [Unknown]
  - Hereditary angioedema [Unknown]
  - Rash [Unknown]
  - Hereditary angioedema [Unknown]
  - Rash [Unknown]
  - Hereditary angioedema [Unknown]
  - Rash [Unknown]
  - Dysentery [Unknown]
  - Hereditary angioedema [Unknown]
  - Rash [Unknown]
  - Dysentery [Unknown]
  - Hereditary angioedema [Unknown]
  - Dysentery [Unknown]
  - Headache [Unknown]
  - Hereditary angioedema [Unknown]
  - Hereditary angioedema [Unknown]
  - Headache [Unknown]
  - Dysentery [Unknown]
  - Hereditary angioedema [Unknown]
  - Dysentery [Unknown]
  - Malaise [Unknown]
  - No adverse event [Unknown]
  - Product use in unapproved indication [Unknown]
  - Off label use [Unknown]
  - Intentional product use issue [Unknown]

NARRATIVE: CASE EVENT DATE: 20200101
